FAERS Safety Report 11344065 (Version 1)
Quarter: 2015Q3

REPORT INFORMATION
  Report Type: Spontaneous
  Country: VN (occurrence: VN)
  Receive Date: 20150806
  Receipt Date: 20150806
  Transmission Date: 20151125
  Serious: Yes (Other)
  Sender: FDA-Public Use
  Company Number: VN-JNJFOC-20150519284

PATIENT
  Age: 28 Year
  Sex: Female

DRUGS (7)
  1. SALAZOPYRIN [Concomitant]
     Active Substance: SULFASALAZINE
     Dosage: DMARDS
     Route: 065
  2. MYONAL [Concomitant]
     Active Substance: EPERISONE HYDROCHLORIDE
     Indication: MUSCLE RELAXANT THERAPY
     Route: 065
  3. ARCOXIA [Concomitant]
     Active Substance: ETORICOXIB
     Route: 065
  4. RABEPRAZOLE [Concomitant]
     Active Substance: RABEPRAZOLE
     Dosage: ANTIULCER DRUG
     Route: 065
  5. CALCIUM CARBONATE W/COLECALCIFEROL [Concomitant]
     Active Substance: CALCIUM CARBONATE\CHOLECALCIFEROL
     Indication: MINERAL SUPPLEMENTATION
     Route: 065
  6. CALCIUM CARBONATE W/COLECALCIFEROL [Concomitant]
     Active Substance: CALCIUM CARBONATE\CHOLECALCIFEROL
     Indication: VITAMIN SUPPLEMENTATION
     Route: 065
  7. REMICADE [Suspect]
     Active Substance: INFLIXIMAB
     Indication: ANKYLOSING SPONDYLITIS
     Dosage: AT 0, 2, 6 WEEKS AND REPEATED AT EVERY 8 WEEKS
     Route: 042
     Dates: start: 20140912, end: 20150328

REACTIONS (2)
  - Alveolar lung disease [Unknown]
  - Extrapulmonary tuberculosis [Unknown]

NARRATIVE: CASE EVENT DATE: 20150528
